FAERS Safety Report 8596212-6 (Version None)
Quarter: 2012Q3

REPORT INFORMATION
  Report Type: 
  Country: None (occurrence: None)
  Receive Date: 20120815
  Receipt Date: 20120806
  Transmission Date: 20120928
  Serious: Yes (Hospitalization)
  Sender: FDA-Public Use
  Company Number: FR-GLAXOSMITHKLINE-B0820595A

PATIENT
  Age: 54 Year
  Sex: Female

DRUGS (7)
  1. CLOBAZAM [Concomitant]
     Indication: SCHIZOPHRENIA
     Route: 065
  2. ATARAX [Concomitant]
     Indication: SCHIZOPHRENIA
     Route: 065
  3. LORAZEPAM [Concomitant]
     Indication: SCHIZOPHRENIA
     Route: 065
  4. LAMICTAL [Suspect]
     Indication: SCHIZOPHRENIA
     Route: 065
     Dates: start: 20070101
  5. CLOZAPINE [Concomitant]
     Indication: SCHIZOPHRENIA
     Route: 065
  6. TERCIAN [Concomitant]
     Indication: SCHIZOPHRENIA
     Route: 065
  7. ABILIFY [Concomitant]
     Indication: SCHIZOPHRENIA
     Route: 065

REACTIONS (1)
  - PSYCHIATRIC DECOMPENSATION [None]
